FAERS Safety Report 10467476 (Version 3)
Quarter: 2015Q1

REPORT INFORMATION
  Report Type: Report from Study
  Country: DE (occurrence: DE)
  Receive Date: 20140922
  Receipt Date: 20150211
  Transmission Date: 20150720
  Serious: Yes (Hospitalization)
  Sender: FDA-Public Use
  Company Number: DE-ABBVIE-14K-062-1284759-00

PATIENT
  Age: 51 Year
  Sex: Female
  Weight: 64 kg

DRUGS (7)
  1. HUMIRA [Suspect]
     Active Substance: ADALIMUMAB
     Indication: RHEUMATOID ARTHRITIS
     Route: 058
     Dates: start: 201401, end: 20140614
  2. DICLOFENAC [Concomitant]
     Active Substance: DICLOFENAC
     Indication: PRODUCT USED FOR UNKNOWN INDICATION
     Dates: start: 201307
  3. METOPROLOL [Concomitant]
     Active Substance: METOPROLOL
     Indication: PRODUCT USED FOR UNKNOWN INDICATION
  4. LOSARTAN [Concomitant]
     Active Substance: LOSARTAN
     Indication: PRODUCT USED FOR UNKNOWN INDICATION
  5. PREDNISOLON [Concomitant]
     Active Substance: PREDNISOLONE
     Indication: RHEUMATOID ARTHRITIS
     Dates: start: 201307
  6. OMEPRAZOL [Concomitant]
     Active Substance: OMEPRAZOLE
     Indication: PRODUCT USED FOR UNKNOWN INDICATION
  7. PREDNISOLON [Concomitant]
     Active Substance: PREDNISOLONE
     Dosage: AT MORNING
     Dates: start: 201406

REACTIONS (18)
  - Joint effusion [Recovered/Resolved]
  - Lymphocyte count decreased [Unknown]
  - Eosinophil count decreased [Unknown]
  - Fibrin degradation products increased [Unknown]
  - Blood glucose increased [Unknown]
  - Protein total increased [Unknown]
  - Monocyte count decreased [Unknown]
  - General physical health deterioration [Recovered/Resolved]
  - Rheumatoid arthritis [Recovered/Resolved]
  - Sinus tachycardia [Unknown]
  - Blood alkaline phosphatase increased [Unknown]
  - Pleural effusion [Recovered/Resolved]
  - Flank pain [Recovering/Resolving]
  - Chest pain [Recovering/Resolving]
  - Blood lactate dehydrogenase increased [Unknown]
  - Electrocardiogram repolarisation abnormality [Unknown]
  - Neutrophil count decreased [Unknown]
  - Dyspnoea [Recovering/Resolving]

NARRATIVE: CASE EVENT DATE: 20140605
